FAERS Safety Report 14838752 (Version 1)
Quarter: 2018Q2

REPORT INFORMATION
  Report Type: Spontaneous
  Country: US (occurrence: US)
  Receive Date: 20180502
  Receipt Date: 20180502
  Transmission Date: 20180711
  Serious: No
  Sender: FDA-Public Use
  Company Number: US-BEH-2018090290

PATIENT
  Sex: Male
  Weight: 91.16 kg

DRUGS (13)
  1. DIPHENHYDRAMINE. [Concomitant]
     Active Substance: DIPHENHYDRAMINE
  2. ZEMAIRA [Suspect]
     Active Substance: .ALPHA.1-PROTEINASE INHIBITOR HUMAN
     Indication: ALPHA-1 ANTI-TRYPSIN DEFICIENCY
     Dosage: 60 MG/KG, QW
     Route: 042
     Dates: start: 20110823
  3. SODIUM CHLORIDE. [Concomitant]
     Active Substance: SODIUM CHLORIDE
  4. VILANTEROL [Concomitant]
     Active Substance: VILANTEROL TRIFENATATE
  5. ZEMAIRA [Suspect]
     Active Substance: .ALPHA.1-PROTEINASE INHIBITOR HUMAN
     Dosage: 60 MG/KG, TOT
     Route: 042
  6. MIRTAZAPINE. [Concomitant]
     Active Substance: MIRTAZAPINE
  7. PREDNISONE. [Concomitant]
     Active Substance: PREDNISONE
  8. VENTOLIN [Concomitant]
     Active Substance: ALBUTEROL SULFATE
  9. UMECLIDINIUM [Concomitant]
     Active Substance: UMECLIDINIUM BROMIDE
  10. COMBIVENT RESPIMAT [Concomitant]
     Active Substance: ALBUTEROL SULFATE\IPRATROPIUM BROMIDE
  11. PROVENTIL [Concomitant]
     Active Substance: ALBUTEROL
  12. ACETAMINOPHEN. [Concomitant]
     Active Substance: ACETAMINOPHEN
  13. EPINEPHRINE. [Concomitant]
     Active Substance: EPINEPHRINE

REACTIONS (3)
  - Upper respiratory tract infection [Unknown]
  - Cough [Unknown]
  - Dyspnoea [Unknown]
